FAERS Safety Report 22064847 (Version 1)
Quarter: 2023Q1

REPORT INFORMATION
  Report Type: Spontaneous
  Country: US (occurrence: None)
  Receive Date: 20230303
  Receipt Date: 20230303
  Transmission Date: 20230417
  Serious: Yes (Other)
  Sender: FDA-Public Use
  Company Number: None

PATIENT
  Age: 20 Year
  Sex: Male
  Weight: 49.5 kg

DRUGS (2)
  1. VENOFER [Suspect]
     Active Substance: IRON SUCROSE
     Indication: Iron deficiency
     Dosage: FREQUENCY : AS NEEDED;?
     Route: 042
     Dates: start: 20230120, end: 20230227
  2. VENOFER [Suspect]
     Active Substance: IRON SUCROSE
     Indication: Anaphylactic reaction

REACTIONS (7)
  - Urticaria [None]
  - Heart rate increased [None]
  - Therapy interrupted [None]
  - Hypersensitivity [None]
  - Angioedema [None]
  - Dyspnoea [None]
  - Infusion related reaction [None]

NARRATIVE: CASE EVENT DATE: 20230225
